FAERS Safety Report 4760527-X (Version None)
Quarter: 2005Q3

REPORT INFORMATION
  Report Type: 
  Country: None (occurrence: None)
  Receive Date: 20050826
  Receipt Date: 20050118
  Transmission Date: 20060218
  Serious: Yes (Other)
  Sender: FDA-Public Use
  Company Number: USA-2005-0018411

PATIENT
  Sex: Female

DRUGS (3)
  1. OXYCONTIN [Suspect]
     Indication: PAIN
     Dosage: 40 MG, SEE TEXT
  2. CYMBALTA [Concomitant]
  3. .. [Concomitant]

REACTIONS (3)
  - APATHY [None]
  - CONFUSIONAL STATE [None]
  - DRUG DEPENDENCE [None]
